FAERS Safety Report 24120864 (Version 2)
Quarter: 2024Q3

REPORT INFORMATION
  Report Type: Spontaneous
  Country: IT (occurrence: IT)
  Receive Date: 20240722
  Receipt Date: 20240725
  Transmission Date: 20241017
  Serious: Yes (Death, Other)
  Sender: NOVARTIS
  Company Number: IT-002147023-NVSC2024IT143597

PATIENT
  Age: 50 Year
  Sex: Male

DRUGS (6)
  1. IMATINIB [Suspect]
     Active Substance: IMATINIB
     Indication: Gastrointestinal stromal tumour
     Dosage: UNK
     Route: 065
     Dates: start: 201805
  2. IMATINIB [Suspect]
     Active Substance: IMATINIB
     Dosage: UNK
     Route: 065
  3. REGORAFENIB [Suspect]
     Active Substance: REGORAFENIB
     Indication: Gastrointestinal stromal tumour
     Dosage: UNK, INITIAL REDUCED DOSE
     Route: 065
     Dates: start: 202010
  4. REGORAFENIB [Suspect]
     Active Substance: REGORAFENIB
     Dosage: 160 MILLIGRAM, QD
     Route: 065
     Dates: start: 2020
  5. REGORAFENIB [Suspect]
     Active Substance: REGORAFENIB
     Dosage: 120 MILLIGRAM, QD (CONTINUOUSLY)
     Route: 065
     Dates: start: 202106
  6. SUNITINIB [Suspect]
     Active Substance: SUNITINIB
     Indication: Gastrointestinal stromal tumour
     Dosage: SECOND LINE-THERAPY
     Route: 065
     Dates: start: 202001

REACTIONS (3)
  - Gastrointestinal stromal tumour [Fatal]
  - Malignant neoplasm progression [Fatal]
  - Therapy partial responder [Unknown]
